FAERS Safety Report 12310549 (Version 1)
Quarter: 2016Q2

REPORT INFORMATION
  Report Type: Spontaneous
  Country: US (occurrence: None)
  Receive Date: 20160426
  Receipt Date: 20160426
  Transmission Date: 20160815
  Serious: Yes (Hospitalization)
  Sender: FDA-Public Use
  Company Number: None

PATIENT
  Age: 83 Year
  Sex: Male
  Weight: 105.24 kg

DRUGS (13)
  1. POTASSIUM CHLORIDE. [Concomitant]
     Active Substance: POTASSIUM CHLORIDE
  2. GINGER. [Concomitant]
     Active Substance: GINGER
  3. DILTIAZEM [Concomitant]
     Active Substance: DILTIAZEM
  4. TRAMADOL. [Concomitant]
     Active Substance: TRAMADOL
  5. ENALAPRIL [Concomitant]
     Active Substance: ENALAPRIL
  6. FISH OIL [Concomitant]
     Active Substance: FISH OIL
  7. NUTRA LIFE MILK THISTLE [Concomitant]
  8. FUROSEMIDE. [Concomitant]
     Active Substance: FUROSEMIDE
  9. ASPIIRIN [Concomitant]
  10. HARVONI [Suspect]
     Active Substance: LEDIPASVIR\SOFOSBUVIR
     Indication: HEPATITIS C
     Dosage: 90/400 1X DAILY ORAL
     Route: 048
     Dates: start: 20150624, end: 20151209
  11. FINASTERIDE. [Concomitant]
     Active Substance: FINASTERIDE
  12. MULTIVITAMIN [Concomitant]
     Active Substance: VITAMINS
  13. ANTIHISTEMINES [Concomitant]

REACTIONS (13)
  - Abdominal pain [None]
  - White blood cell count increased [None]
  - Pyrexia [None]
  - Peripheral swelling [None]
  - Chills [None]
  - Cellulitis [None]
  - Dizziness [None]
  - Penile oedema [None]
  - Oedema peripheral [None]
  - Scrotal oedema [None]
  - Fatigue [None]
  - Bronchitis [None]
  - Abdominal distension [None]

NARRATIVE: CASE EVENT DATE: 20160117
